FAERS Safety Report 6701675-4 (Version None)
Quarter: 2010Q2

REPORT INFORMATION
  Report Type: 
  Country: None (occurrence: None)
  Receive Date: 20100429
  Receipt Date: 20100415
  Transmission Date: 20101027
  Serious: Yes (Death, Hospitalization)
  Sender: FDA-Public Use
  Company Number: PHHY2010CZ21052

PATIENT
  Age: 53 Year
  Sex: Male

DRUGS (6)
  1. TEGRETOL [Suspect]
     Dosage: 2 X 400 MG
  2. METHYLPREDNISOLONE [Concomitant]
     Dosage: 250 MG/ DAY
     Route: 042
  3. TRAMADOL HCL [Concomitant]
  4. DIHYDROCODEINE BITARTRATE INJ [Concomitant]
     Dosage: 2 X 90 MG
  5. ISRADIPINE [Concomitant]
     Indication: HYPERTENSION
     Dosage: UNK
  6. PERINDOPRIL [Concomitant]
     Indication: HYPERTENSION
     Dosage: UNK

REACTIONS (3)
  - ANTIBODY TEST POSITIVE [None]
  - ARRHYTHMIA [None]
  - CARDIAC FAILURE ACUTE [None]
